FAERS Safety Report 13695939 (Version 1)
Quarter: 2017Q2

REPORT INFORMATION
  Report Type: Spontaneous
  Country: RU (occurrence: RU)
  Receive Date: 20170628
  Receipt Date: 20170628
  Transmission Date: 20170830
  Serious: Yes (Hospitalization)
  Sender: FDA-Public Use
  Company Number: RU-ASTRAZENECA-2017SE65004

PATIENT
  Age: 67 Year
  Sex: Female
  Weight: 88 kg

DRUGS (8)
  1. BRILINTA [Suspect]
     Active Substance: TICAGRELOR
     Indication: MYOCARDIAL INFARCTION
     Route: 048
  2. HEPARIN [Concomitant]
     Active Substance: HEPARIN SODIUM
  3. NYTROGLYCERIN [Concomitant]
  4. INSULIN [Concomitant]
     Active Substance: INSULIN NOS
  5. TRAMAL [Concomitant]
     Active Substance: TRAMADOL
  6. BRILINTA [Suspect]
     Active Substance: TICAGRELOR
     Indication: MYOCARDIAL INFARCTION
     Route: 048
  7. DIUVER [Concomitant]
     Active Substance: TORSEMIDE
  8. CRESTOR [Suspect]
     Active Substance: ROSUVASTATIN CALCIUM
     Indication: MYOCARDIAL INFARCTION
     Route: 048

REACTIONS (4)
  - Angina unstable [Recovering/Resolving]
  - Epistaxis [Not Recovered/Not Resolved]
  - Blood glucose increased [Unknown]
  - Intentional product misuse [Unknown]
